FAERS Safety Report 6063508-1 (Version None)
Quarter: 2009Q1

REPORT INFORMATION
  Report Type: 
  Country: None (occurrence: None)
  Receive Date: 20090203
  Receipt Date: 20090122
  Transmission Date: 20090719
  Serious: Yes (Other)
  Sender: FDA-Public Use
  Company Number: US-ELI_LILLY_AND_COMPANY-US200901003840

PATIENT
  Sex: Female

DRUGS (5)
  1. CYMBALTA [Suspect]
     Indication: DEPRESSION
     Dosage: 30 MG, UNK
     Dates: start: 20080301
  2. XANAX [Concomitant]
  3. OTHER ANTIHYPERTENSIVES [Concomitant]
  4. OTHER PLAIN VITAMIN PREPARATIONS [Concomitant]
  5. THYROID HORMONES [Concomitant]

REACTIONS (5)
  - ABNORMAL BEHAVIOUR [None]
  - KNEE ARTHROPLASTY [None]
  - POTENTIATING DRUG INTERACTION [None]
  - SEROTONIN SYNDROME [None]
  - WEIGHT DECREASED [None]
